FAERS Safety Report 15468248 (Version 18)
Quarter: 2024Q4

REPORT INFORMATION
  Report Type: Report from Study
  Country: CO (occurrence: CO)
  Receive Date: 20181005
  Receipt Date: 20241209
  Transmission Date: 20250115
  Serious: Yes (Other)
  Sender: NOVARTIS
  Company Number: PHHY2018CO088856

PATIENT
  Sex: Female
  Weight: 80 kg

DRUGS (11)
  1. TASIGNA [Suspect]
     Active Substance: NILOTINIB
     Indication: Chronic myeloid leukaemia
     Dosage: 800 MG, QD
     Route: 048
     Dates: start: 20171007
  2. TASIGNA [Suspect]
     Active Substance: NILOTINIB
     Dosage: 200 MG, QD
     Route: 048
  3. TASIGNA [Suspect]
     Active Substance: NILOTINIB
     Dosage: 800 MG, QD
     Route: 048
     Dates: start: 20180502
  4. TASIGNA [Suspect]
     Active Substance: NILOTINIB
     Dosage: 400 MG, Q12H
     Route: 048
  5. TASIGNA [Suspect]
     Active Substance: NILOTINIB
     Dosage: 400 MG, QD (400 MG / 2 OF 200 MG)
     Route: 065
  6. TASIGNA [Suspect]
     Active Substance: NILOTINIB
     Dosage: 800 MG (4 OF 200 MG)
     Route: 065
  7. TASIGNA [Suspect]
     Active Substance: NILOTINIB
     Dosage: 400 MG, BID
     Route: 048
     Dates: start: 20200604
  8. TASIGNA [Suspect]
     Active Substance: NILOTINIB
     Dosage: 400 MG, Q12H
     Route: 048
  9. TASIGNA [Suspect]
     Active Substance: NILOTINIB
     Dosage: UNK
     Route: 048
  10. TASIGNA [Suspect]
     Active Substance: NILOTINIB
     Dosage: 800 MG, QD
     Route: 048
  11. LEVOTHYROXINE SODIUM [Concomitant]
     Active Substance: LEVOTHYROXINE SODIUM
     Indication: Product used for unknown indication
     Dosage: UNK
     Route: 065

REACTIONS (24)
  - Brain neoplasm [Unknown]
  - Thyroid cancer [Unknown]
  - Memory impairment [Unknown]
  - Malaise [Unknown]
  - Dizziness [Unknown]
  - Visual impairment [Unknown]
  - Headache [Unknown]
  - Arthropathy [Unknown]
  - Mobility decreased [Unknown]
  - Meniscus injury [Unknown]
  - Pain [Unknown]
  - Gait inability [Unknown]
  - Osteoarthritis [Unknown]
  - Nausea [Unknown]
  - Urticaria [Unknown]
  - Ear pain [Unknown]
  - Vomiting [Unknown]
  - Thyroid disorder [Unknown]
  - Incorrect product administration duration [Unknown]
  - Product availability issue [Unknown]
  - Adenoma benign [Unknown]
  - Noninfective gingivitis [Unknown]
  - Loose tooth [Unknown]
  - Weight increased [Unknown]

NARRATIVE: CASE EVENT DATE: 20170101
